FAERS Safety Report 20016517 (Version 1)
Quarter: 2021Q4

REPORT INFORMATION
  Report Type: Spontaneous
  Country: US (occurrence: None)
  Receive Date: 20211104
  Receipt Date: 20211104
  Transmission Date: 20220303
  Serious: Yes (Hospitalization)
  Sender: FDA-Public Use
  Company Number: None

PATIENT
  Age: 77 Year
  Sex: Male
  Weight: 64.89 kg

DRUGS (10)
  1. ABIRATERONE [Suspect]
     Active Substance: ABIRATERONE
     Indication: Prostate cancer
     Dosage: FREQUENCY : DAILY;?
     Route: 048
     Dates: start: 20201106
  2. ASPIRIN [Concomitant]
     Active Substance: ASPIRIN
  3. BICALUTAMIDE [Concomitant]
     Active Substance: BICALUTAMIDE
  4. FAMOTIDINE [Concomitant]
     Active Substance: FAMOTIDINE
  5. IBUPROFEN [Concomitant]
     Active Substance: IBUPROFEN
  6. METOPROLOL [Concomitant]
     Active Substance: METOPROLOL
  7. ONDANSETRON [Concomitant]
     Active Substance: ONDANSETRON
  8. PANTOPRAZOLE [Concomitant]
     Active Substance: PANTOPRAZOLE
  9. PREDNISONE [Concomitant]
     Active Substance: PREDNISONE
  10. REGLAN [Concomitant]
     Active Substance: METOCLOPRAMIDE HYDROCHLORIDE

REACTIONS (2)
  - Urinary tract infection [None]
  - Gait disturbance [None]

NARRATIVE: CASE EVENT DATE: 20211101
